FAERS Safety Report 16041439 (Version 1)
Quarter: 2019Q1

REPORT INFORMATION
  Report Type: Spontaneous
  Country: US (occurrence: US)
  Receive Date: 20190306
  Receipt Date: 20190306
  Transmission Date: 20190418
  Serious: No
  Sender: FDA-Public Use
  Company Number: US-AKORN PHARMACEUTICALS-2019AKN00065

PATIENT

DRUGS (4)
  1. MYORISAN [Suspect]
     Active Substance: ISOTRETINOIN
     Dosage: 60 MG
  2. MYORISAN [Suspect]
     Active Substance: ISOTRETINOIN
     Dosage: 70 UNK
  3. ISOTRETINOIN. [Suspect]
     Active Substance: ISOTRETINOIN
     Dosage: 60 MG
  4. ISOTRETINOIN. [Suspect]
     Active Substance: ISOTRETINOIN
     Dosage: 70 MG

REACTIONS (2)
  - Acne [Unknown]
  - Drug ineffective [Unknown]
